FAERS Safety Report 4340437-2 (Version None)
Quarter: 2004Q2

REPORT INFORMATION
  Report Type: 
  Country: None (occurrence: None)
  Receive Date: 20040414
  Receipt Date: 20040329
  Transmission Date: 20050107
  Serious: Yes (Hospitalization)
  Sender: FDA-Public Use
  Company Number: F01200400661

PATIENT
  Age: 52 Year
  Sex: Female

DRUGS (12)
  1. OXALIPLATIN [Suspect]
     Indication: COLORECTAL CANCER
     Dosage: 85 MG/M2 Q2W
     Route: 042
     Dates: start: 20040312, end: 20040312
  2. FLUOROURACIL [Suspect]
     Dosage: 500 MG/M2 BOLUS ON D1, D8 AND D15, Q4W  (DURATION: A FEW MINS)
     Route: 040
     Dates: start: 20040319, end: 20040319
  3. LEUCOVORIN CALCIUM [Suspect]
     Dosage: 20 MG/M2 ON D1, D8 AND D15, Q4W   (DURATION: A FEW MINS)
     Route: 040
     Dates: start: 20040319, end: 20040319
  4. AVASTIN [Suspect]
     Dosage: 5 MG/KG OVER 30-90 MINUTES IV INFUSION ON DAY 1, 15, Q2W
     Route: 042
     Dates: start: 20040312, end: 20040312
  5. BISOPROLOL [Concomitant]
  6. SULFAMETHOXAZOLE + TRIMETHOPRIM [Concomitant]
  7. IMODIUM [Concomitant]
  8. EMED (????) [Concomitant]
  9. DEXAMETHASONE [Concomitant]
  10. LISINOPRIL [Concomitant]
  11. LORAZEPAM [Concomitant]
  12. PROCHLORPERAZINE [Concomitant]

REACTIONS (6)
  - BLOOD POTASSIUM DECREASED [None]
  - CHEST DISCOMFORT [None]
  - DYSPNOEA [None]
  - LOCAL SWELLING [None]
  - SUPERIOR VENA CAVAL OCCLUSION [None]
  - SWELLING FACE [None]
